FAERS Safety Report 13431336 (Version 2)
Quarter: 2017Q2

REPORT INFORMATION
  Report Type: Report from Study
  Country: AU (occurrence: AU)
  Receive Date: 20170412
  Receipt Date: 20170511
  Transmission Date: 20170830
  Serious: Yes (Hospitalization, Disabling, Other)
  Sender: FDA-Public Use
  Company Number: AU-CELGENEUS-AUS-2017014932

PATIENT
  Age: 69 Year
  Sex: Female
  Weight: 58.1 kg

DRUGS (39)
  1. AZACITIDINE. [Suspect]
     Active Substance: AZACITIDINE
     Indication: ACUTE MYELOID LEUKAEMIA
     Dosage: 90 MG
     Route: 058
     Dates: start: 20170109
  2. RED BLOOD CELLS [Concomitant]
     Active Substance: HUMAN RED BLOOD CELL
     Indication: ANAEMIA PROPHYLAXIS
     Dosage: 2 UNITS
     Route: 041
     Dates: start: 20170119, end: 20170119
  3. RED BLOOD CELLS [Concomitant]
     Active Substance: HUMAN RED BLOOD CELL
     Dosage: 2 UNITS
     Route: 041
     Dates: start: 20170223, end: 20170223
  4. SLOW K [Concomitant]
     Active Substance: POTASSIUM CHLORIDE
     Indication: PROPHYLAXIS
     Route: 041
     Dates: start: 201611
  5. AZACITIDINE. [Suspect]
     Active Substance: AZACITIDINE
     Dosage: 90 MG
     Route: 058
     Dates: end: 20170117
  6. LACTULOSE. [Concomitant]
     Active Substance: LACTULOSE
     Indication: CONSTIPATION
     Dosage: 45 ML
     Route: 048
     Dates: start: 20170113, end: 20170116
  7. VENTOLIN [Concomitant]
     Active Substance: ALBUTEROL SULFATE
     Indication: DYSPNOEA
     Route: 065
     Dates: start: 201611
  8. CLEXANE [Concomitant]
     Active Substance: ENOXAPARIN SODIUM
     Indication: PROPHYLAXIS
     Route: 065
     Dates: start: 20170116, end: 20170116
  9. AZACITIDINE. [Suspect]
     Active Substance: AZACITIDINE
     Dosage: 90 MG
     Route: 058
     Dates: start: 20170221, end: 20170226
  10. CEPHALEXIN. [Suspect]
     Active Substance: CEPHALEXIN
     Indication: INJURY
     Route: 065
     Dates: start: 20170113, end: 20170117
  11. CEFEPIME [Suspect]
     Active Substance: CEFEPIME HYDROCHLORIDE
     Indication: FEBRILE NEUTROPENIA
     Route: 065
     Dates: start: 20170205, end: 20170207
  12. RED BLOOD CELLS [Concomitant]
     Active Substance: HUMAN RED BLOOD CELL
     Dosage: 2 UNITS
     Route: 065
     Dates: start: 20170209, end: 20170209
  13. GRANISETRON [Concomitant]
     Active Substance: GRANISETRON
     Indication: PROPHYLAXIS OF NAUSEA AND VOMITING
     Route: 065
     Dates: start: 20170109, end: 20170113
  14. CEFEPIME [Suspect]
     Active Substance: CEFEPIME HYDROCHLORIDE
     Indication: PYREXIA
     Dosage: 2 GRAM
     Route: 041
     Dates: start: 20170116, end: 20170117
  15. CEFTAZADIME [Suspect]
     Active Substance: CEFTAZIDIME
     Indication: FEBRILE NEUTROPENIA
     Dosage: 6 GRAM
     Route: 041
     Dates: start: 20170116, end: 20170116
  16. VALACICLOVIR [Concomitant]
     Active Substance: VALACYCLOVIR HYDROCHLORIDE
     Indication: ANTIVIRAL PROPHYLAXIS
     Route: 065
     Dates: start: 201611
  17. RANITIDINE. [Concomitant]
     Active Substance: RANITIDINE
     Indication: GASTROOESOPHAGEAL REFLUX DISEASE
     Route: 065
     Dates: start: 201611
  18. BACTRIM [Concomitant]
     Active Substance: SULFAMETHOXAZOLE\TRIMETHOPRIM
     Indication: PNEUMOCYSTIS JIROVECII PNEUMONIA
     Route: 065
     Dates: start: 201611
  19. METOCLOPRAMIDE. [Concomitant]
     Active Substance: METOCLOPRAMIDE
     Indication: PROPHYLAXIS OF NAUSEA AND VOMITING
     Route: 065
     Dates: start: 20161018, end: 20170227
  20. SLOW K [Concomitant]
     Active Substance: POTASSIUM CHLORIDE
     Indication: ELECTROLYTE SUBSTITUTION THERAPY
     Dosage: 50 MMOL IN 100 ML NORMAL SALINE OVER2 HRS
     Route: 041
     Dates: start: 20170227, end: 20170227
  21. METACLOPRAMIDE [Concomitant]
     Active Substance: METOCLOPRAMIDE
     Dosage: 40 MG
     Route: 065
     Dates: start: 20170227, end: 20170227
  22. FUROSEMIDE. [Concomitant]
     Active Substance: FUROSEMIDE
     Indication: PROPHYLAXIS
     Route: 065
     Dates: start: 20170224, end: 20170227
  23. CYTARABINE. [Concomitant]
     Active Substance: CYTARABINE
     Indication: PROPHYLAXIS
     Route: 065
     Dates: start: 20170207, end: 20170207
  24. CIPROFLOXACIN. [Suspect]
     Active Substance: CIPROFLOXACIN
     Indication: INFECTION PROPHYLAXIS
     Dosage: 500 MILLIGRAM
     Route: 048
     Dates: start: 20170121
  25. COLOXYL [Concomitant]
     Active Substance: DOCUSATE SODIUM
     Indication: CONSTIPATION
     Route: 065
     Dates: start: 201611
  26. METOCLOPRAMIDE. [Concomitant]
     Active Substance: METOCLOPRAMIDE
     Dosage: 40 MG OVER 24HRS WITH HALOPERIDOL
     Route: 065
     Dates: start: 20170227, end: 20170227
  27. SLOW K [Concomitant]
     Active Substance: POTASSIUM CHLORIDE
     Dosage: 20 MMOL IN 100 ML NORMAL SALINE OVER 2 HRS
     Route: 041
     Dates: start: 20170226, end: 20170226
  28. METACLOPRAMIDE [Concomitant]
     Active Substance: METOCLOPRAMIDE
     Indication: NAUSEA
     Route: 041
     Dates: start: 20161018, end: 20170227
  29. GASTROGEL [Concomitant]
     Active Substance: ALUMINUM HYDROXIDE\MAGNESIUM HYDROXIDE\MAGNESIUM TRISILICATE
     Indication: GASTROOESOPHAGEAL REFLUX DISEASE
     Route: 065
     Dates: start: 20170208, end: 20170208
  30. PONATINIB [Suspect]
     Active Substance: PONATINIB
     Indication: ACUTE MYELOID LEUKAEMIA
     Dosage: 30 MG
     Route: 048
     Dates: start: 20170111, end: 20170120
  31. CEFEPIME [Suspect]
     Active Substance: CEFEPIME HYDROCHLORIDE
     Indication: NECK PAIN
     Dosage: 4 GRAM
     Route: 041
     Dates: start: 20170117, end: 20170121
  32. CEFEPIME [Suspect]
     Active Substance: CEFEPIME HYDROCHLORIDE
     Dosage: 6 G
     Route: 065
     Dates: start: 20170224, end: 20170227
  33. CIPROFLOXACIN. [Suspect]
     Active Substance: CIPROFLOXACIN
     Route: 065
     Dates: start: 20170208, end: 20170220
  34. LACTULOSE. [Concomitant]
     Active Substance: LACTULOSE
     Route: 065
     Dates: start: 20170213, end: 20170221
  35. SODIUM BICARBONATE. [Concomitant]
     Active Substance: SODIUM BICARBONATE
     Indication: MUCOSAL INFLAMMATION
     Route: 065
     Dates: start: 20161018, end: 20170227
  36. POSACONAZOLE [Suspect]
     Active Substance: POSACONAZOLE
     Indication: ANTIFUNGAL PROPHYLAXIS
     Dosage: 300 MG
     Route: 065
     Dates: start: 201611
  37. SENNA [Concomitant]
     Active Substance: SENNA LEAF\SENNOSIDES\SENNOSIDES A AND B
     Indication: CONSTIPATION PROPHYLAXIS
     Route: 065
     Dates: start: 201611
  38. MOVICOL [Concomitant]
     Active Substance: POLYETHYLENE GLYCOL 3350\POTASSIUM CHLORIDE\SODIUM BICARBONATE\SODIUM CHLORIDE
     Indication: CONSTIPATION
     Route: 048
     Dates: start: 20170114, end: 20170119
  39. MOVICOL [Concomitant]
     Active Substance: POLYETHYLENE GLYCOL 3350\POTASSIUM CHLORIDE\SODIUM BICARBONATE\SODIUM CHLORIDE
     Route: 048
     Dates: start: 20170120, end: 20170227

REACTIONS (4)
  - Liver function test increased [Recovered/Resolved]
  - Febrile neutropenia [Recovered/Resolved]
  - Neck pain [Recovered/Resolved]
  - Nausea [Not Recovered/Not Resolved]

NARRATIVE: CASE EVENT DATE: 20170116
